FAERS Safety Report 5027951-1 (Version None)
Quarter: 2006Q2

REPORT INFORMATION
  Report Type: 
  Country: None (occurrence: None)
  Receive Date: 20060612
  Receipt Date: 20060530
  Transmission Date: 20061013
  Serious: Yes (Death)
  Sender: FDA-Public Use
  Company Number: 163-21880-06030246

PATIENT
  Age: 55 Year
  Sex: Male

DRUGS (19)
  1. REVLIMID [Suspect]
     Indication: MYELODYSPLASTIC SYNDROME
     Dosage: 10 MG, DAILY, ORAL
     Route: 048
     Dates: start: 20060304, end: 20060317
  2. REVLIMID [Suspect]
     Indication: SIDEROBLASTIC ANAEMIA
     Dosage: 10 MG, DAILY, ORAL
     Route: 048
     Dates: start: 20060304, end: 20060317
  3. ANTIBIOTICS (ANTIBIOTICS) [Concomitant]
  4. GLIPIZIDE [Concomitant]
  5. MAXIPIME [Concomitant]
  6. VANCOMYCIN [Concomitant]
  7. QUESTRAN [Concomitant]
  8. LASIX [Concomitant]
  9. NEURONTIN [Concomitant]
  10. PROTONIX [Concomitant]
  11. SKELAXIN [Concomitant]
  12. ALUMINUM HYDROXIDE AND MAGNESIUM TRISILICATE [Concomitant]
  13. ZOFRAN [Concomitant]
  14. BENADRYL [Concomitant]
  15. ACETAMINOPHEN [Concomitant]
  16. IMODIUM [Concomitant]
  17. DESFEROL [Concomitant]
  18. NEUPOGEN [Concomitant]
  19. DEMEROL [Concomitant]

REACTIONS (9)
  - ANAEMIA [None]
  - BACK PAIN [None]
  - BLOOD IRON INCREASED [None]
  - DIARRHOEA [None]
  - DISEASE PROGRESSION [None]
  - NEURITIS [None]
  - PYREXIA [None]
  - RASH [None]
  - SEPSIS [None]
